FAERS Safety Report 20883721 (Version 1)
Quarter: 2022Q2

REPORT INFORMATION
  Report Type: Spontaneous
  Country: FR (occurrence: FR)
  Receive Date: 20220527
  Receipt Date: 20220527
  Transmission Date: 20220721
  Serious: Yes (Hospitalization)
  Sender: FDA-Public Use
  Company Number: None

PATIENT
  Age: 68 Year
  Sex: Male
  Weight: 52 kg

DRUGS (13)
  1. RIFAMPIN [Suspect]
     Active Substance: RIFAMPIN
     Indication: Osteitis
     Dosage: 600 MG, QD
     Route: 048
     Dates: start: 202106, end: 20210705
  2. RAMIPRIL [Suspect]
     Active Substance: RAMIPRIL
     Indication: Hypertension
     Dosage: YEAR
     Route: 048
     Dates: end: 20210705
  3. LEVOFLOXACIN HEMIHYDRATE [Suspect]
     Active Substance: LEVOFLOXACIN
     Indication: Osteitis
     Dosage: 1 DF, QD
     Route: 048
     Dates: start: 202106, end: 20210705
  4. BISOPROLOL FUMARATE [Concomitant]
     Active Substance: BISOPROLOL FUMARATE
  5. KARDEGIC [Concomitant]
     Active Substance: ASPIRIN DL-LYSINE
  6. OXAZEPAM [Concomitant]
     Active Substance: OXAZEPAM
  7. LANTUS [Concomitant]
     Active Substance: INSULIN GLARGINE
  8. DOLIPRANE [Concomitant]
     Active Substance: ACETAMINOPHEN
  9. ALGINIC ACID\ALUMINUM HYDROXIDE [Concomitant]
     Active Substance: ALGINIC ACID\ALUMINUM HYDROXIDE
  10. LOVENOX [Concomitant]
     Active Substance: ENOXAPARIN SODIUM
  11. PANTOPRAZOLE [Concomitant]
     Active Substance: PANTOPRAZOLE
  12. TAMSULOSIN [Concomitant]
     Active Substance: TAMSULOSIN
  13. ATORVASTATIN [Concomitant]
     Active Substance: ATORVASTATIN

REACTIONS (2)
  - Hyponatraemia [Recovered/Resolved]
  - Diarrhoea [Recovered/Resolved]

NARRATIVE: CASE EVENT DATE: 20210701
